FAERS Safety Report 4374996-0 (Version None)
Quarter: 2004Q2

REPORT INFORMATION
  Report Type: 
  Country: None (occurrence: None)
  Receive Date: 20040604
  Receipt Date: 20040528
  Transmission Date: 20050107
  Serious: Yes (Other)
  Sender: FDA-Public Use
  Company Number: GBWYE740904MAY04

PATIENT
  Age: 23 Year
  Sex: Male

DRUGS (2)
  1. EFFEXOR [Suspect]
     Dosage: 450 MG DAILY IN DIVIDED DOSES ORAL
     Route: 048
  2. TRIGLYCERIDES (TRIGLYCERIDES) [Concomitant]

REACTIONS (1)
  - MACULAR OEDEMA [None]
